FAERS Safety Report 19768804 (Version 3)
Quarter: 2021Q4

REPORT INFORMATION
  Report Type: Report from Study
  Country: US (occurrence: US)
  Receive Date: 20210831
  Receipt Date: 20211028
  Transmission Date: 20220304
  Serious: Yes (Other)
  Sender: FDA-Public Use
  Company Number: US-SCYNEXIS, INC.-2021SCY000023

PATIENT
  Age: 39 Year
  Sex: Female
  Weight: 87.9 kg

DRUGS (34)
  1. IBREXAFUNGERP [Suspect]
     Active Substance: IBREXAFUNGERP
     Indication: Systemic candida
     Dosage: 750 MILLIGRAM, BID
     Route: 048
     Dates: start: 20210810, end: 20210811
  2. FLAGYL [Suspect]
     Active Substance: METRONIDAZOLE\METRONIDAZOLE HYDROCHLORIDE
     Indication: Abdominal abscess
     Dosage: 500 MILLIGRAM, BID
     Route: 042
     Dates: start: 20210709, end: 20210811
  3. ASPIRIN [Concomitant]
     Active Substance: ASPIRIN
     Indication: Product used for unknown indication
     Dosage: UNK
     Route: 048
     Dates: start: 20210623, end: 20210809
  4. FLEXERIL [Concomitant]
     Active Substance: CYCLOBENZAPRINE HYDROCHLORIDE
     Indication: Muscle spasms
     Dosage: 5 MILLIGRAM, PRN
     Route: 048
     Dates: start: 20200629
  5. GLUCAGON [Concomitant]
     Active Substance: GLUCAGON
     Indication: Diabetes mellitus
     Dosage: 1 MILLIGRAM, PRN
     Route: 030
     Dates: start: 20160512
  6. SYNTHROID [Concomitant]
     Active Substance: LEVOTHYROXINE SODIUM
     Indication: Hypothyroidism
     Dosage: 175 MICROGRAM, DAILY
     Route: 048
     Dates: start: 20160720
  7. NUZYRA [Concomitant]
     Active Substance: OMADACYCLINE
     Indication: Product used for unknown indication
     Dosage: UNK
     Route: 048
     Dates: start: 20210808
  8. PRILOSEC [Concomitant]
     Active Substance: OMEPRAZOLE MAGNESIUM
     Indication: Gastrooesophageal reflux disease
     Dosage: 40 MILLIGRAM, DAILY
     Route: 048
     Dates: start: 20171117
  9. COLACE [Concomitant]
     Active Substance: DOCUSATE SODIUM
     Indication: Constipation
     Dosage: 100 MILLIGRAM, BID
     Route: 048
     Dates: start: 20210809
  10. LOPRESSOR [Concomitant]
     Active Substance: METOPROLOL TARTRATE
     Indication: Hypertension
     Dosage: 25 MILLIGRAM, BID
     Route: 048
     Dates: start: 20210809
  11. MIDODRINE [Concomitant]
     Active Substance: MIDODRINE
     Indication: Blood pressure measurement
     Dosage: 20 MILLIGRAM, PRN
     Route: 048
     Dates: start: 20210716
  12. NEPHRO VITE RX [Concomitant]
     Active Substance: ASCORBIC ACID\BIOTIN\CALCIUM PANTOTHENATE\CYANOCOBALAMIN\FOLIC ACID\NIACINAMIDE\PYRIDOXINE HYDROCHLO
     Indication: Hypovitaminosis
     Dosage: 0.8 MILLIGRAM, QD
     Route: 048
     Dates: start: 20210810
  13. CEFEPIME [Concomitant]
     Active Substance: CEFEPIME HYDROCHLORIDE
     Indication: Bacterial infection
     Dosage: 2 GRAM, DAILY
     Route: 042
     Dates: start: 20210625, end: 20210811
  14. VITAMIN D3 [Concomitant]
     Active Substance: CHOLECALCIFEROL
     Indication: Mineral supplementation
     Dosage: 50 MICROGRAM (2,000 UNIT), DAILY
     Route: 048
     Dates: start: 20160105
  15. LYRICA [Concomitant]
     Active Substance: PREGABALIN
     Indication: Myalgia
     Dosage: 50 MILLIGRAM, BID
     Route: 048
     Dates: start: 20180215
  16. ONDANSETRON [Concomitant]
     Active Substance: ONDANSETRON
     Indication: Nausea
     Dosage: 4 MILLIGRAM, EVERY 8 HOURS (Q8H)
     Route: 042
     Dates: start: 20210623, end: 20210814
  17. ONDANSETRON [Concomitant]
     Active Substance: ONDANSETRON
     Indication: Vomiting
  18. TYLENOL [Concomitant]
     Active Substance: ACETAMINOPHEN
     Indication: Pain
     Dosage: 500 MILLIGRAM, EVERY 8 HOURS (Q8H)
     Route: 048
     Dates: start: 2020
  19. ROCALTROL [Concomitant]
     Active Substance: CALCITRIOL
     Indication: Chronic kidney disease
     Dosage: 0.25 MICROGRAM
     Route: 048
     Dates: start: 20200212
  20. ARANESP [Concomitant]
     Active Substance: DARBEPOETIN ALFA
     Indication: Anaemia
     Dosage: 100/0.5 MICROGRAM PER MILLILITRE
     Route: 058
     Dates: start: 20210809
  21. HEPARIN [Concomitant]
     Active Substance: HEPARIN SODIUM
     Dosage: 5 MILLILITER, PRN
     Route: 042
     Dates: start: 20210809, end: 20210815
  22. LIDODERM [Concomitant]
     Active Substance: LIDOCAINE
     Indication: Pain
     Dosage: 5 DOSAGE FORM, EVERY 12 HOURS (Q12H)
     Route: 061
     Dates: start: 20210810
  23. ZOFRAN [Concomitant]
     Active Substance: ONDANSETRON HYDROCHLORIDE
     Indication: Product used for unknown indication
     Dosage: UNK
     Route: 048
     Dates: start: 20200914
  24. LIPITOR [Concomitant]
     Active Substance: ATORVASTATIN CALCIUM
     Indication: Product used for unknown indication
     Dosage: 40 MILLIGRAM
     Route: 048
  25. BENADRYL [Concomitant]
     Active Substance: DIPHENHYDRAMINE HYDROCHLORIDE
     Indication: Product used for unknown indication
     Dosage: 25 MILLIGRAM
     Route: 048
  26. DIPHENHYDRAMINE [Concomitant]
     Active Substance: DIPHENHYDRAMINE
     Indication: Anaphylactic reaction
     Dosage: 50 UNK
     Route: 065
  27. EPIPEN [Concomitant]
     Active Substance: EPINEPHRINE
     Indication: Anaphylactic reaction
     Dosage: UNK
     Route: 065
  28. ERTAPENEM. [Concomitant]
     Active Substance: ERTAPENEM SODIUM
     Indication: Product used for unknown indication
     Dosage: UNK
     Route: 065
  29. FLUOXETINE [Concomitant]
     Active Substance: FLUOXETINE HYDROCHLORIDE
     Indication: Product used for unknown indication
     Dosage: 40 MILLIGRAM
     Route: 048
  30. NOVOLOG [Concomitant]
     Active Substance: INSULIN ASPART
     Indication: Product used for unknown indication
     Dosage: UNK
     Route: 065
  31. Accu-chek multiclix lancet [Concomitant]
     Indication: Blood glucose
     Dosage: UNK
     Route: 065
  32. MICAFUNGIN. [Concomitant]
     Active Substance: MICAFUNGIN SODIUM
     Indication: Product used for unknown indication
     Dosage: UNK
     Route: 042
  33. SODIUM CHLORIDE [Concomitant]
     Active Substance: SODIUM CHLORIDE
     Indication: Anaphylactic reaction
     Dosage: UNK
     Route: 042
  34. Pen needle, diabetic- Insulin [Concomitant]
     Indication: Diabetes mellitus
     Dosage: UNK
     Route: 030
     Dates: start: 20200429

REACTIONS (1)
  - Deafness neurosensory [Recovered/Resolved]

NARRATIVE: CASE EVENT DATE: 20210811
